FAERS Safety Report 20665304 (Version 2)
Quarter: 2022Q2

REPORT INFORMATION
  Report Type: Spontaneous
  Country: US (occurrence: US)
  Receive Date: 20220401
  Receipt Date: 20220629
  Transmission Date: 20220721
  Serious: No
  Sender: FDA-Public Use
  Company Number: US-CELGENE-USA-20220103813

PATIENT
  Age: 82 Year
  Sex: Male

DRUGS (7)
  1. REVLIMID [Suspect]
     Active Substance: LENALIDOMIDE
     Indication: Plasma cell myeloma
     Dosage: 15 MILLIGRAM
     Route: 048
     Dates: start: 201801
  2. REVLIMID [Suspect]
     Active Substance: LENALIDOMIDE
     Indication: Drug therapy
     Dosage: 10-15 MG
     Route: 048
     Dates: start: 201805
  3. REVLIMID [Suspect]
     Active Substance: LENALIDOMIDE
     Dosage: 25-15 MG
     Route: 048
     Dates: start: 202104
  4. REVLIMID [Suspect]
     Active Substance: LENALIDOMIDE
     Dosage: 15 MILLIGRAM
     Route: 048
     Dates: start: 202108
  5. REVLIMID [Suspect]
     Active Substance: LENALIDOMIDE
     Dosage: 15 MILLIGRAM
     Route: 048
  6. REVLIMID [Suspect]
     Active Substance: LENALIDOMIDE
     Dosage: TAKE 1 CAPSULE EVERY DAY ON DAYS 1-14 OF EACH 28 DAY CYCLE
     Route: 048
  7. REVLIMID [Suspect]
     Active Substance: LENALIDOMIDE
     Dosage: FREQUENCY : TAKE 1 CAPSULE BY MOUTH DAILY ON DAYS 1-14 OF EACH 28 DAY CYCLE
     Route: 048

REACTIONS (3)
  - Product distribution issue [Unknown]
  - Immune system disorder [Recovered/Resolved]
  - Tremor [Recovering/Resolving]
